FAERS Safety Report 5936315-5 (Version None)
Quarter: 2008Q4

REPORT INFORMATION
  Report Type: 
  Country: None (occurrence: None)
  Receive Date: 20081030
  Receipt Date: 20081028
  Transmission Date: 20090506
  Serious: Yes (Other)
  Sender: FDA-Public Use
  Company Number: US-BAYER-200812953BCC

PATIENT
  Age: 65 Year
  Sex: Female
  Weight: 83 kg

DRUGS (4)
  1. ASPIRIN [Suspect]
     Indication: ISCHAEMIC HEART DISEASE PROPHYLAXIS
     Dosage: TOTAL DAILY DOSE: 2 DF
     Route: 048
     Dates: start: 20080717, end: 20080717
  2. ASPIRIN [Suspect]
     Dosage: AS USED: 1 DF
     Route: 048
     Dates: start: 20080718, end: 20080718
  3. PRILOSEC [Concomitant]
  4. CITRACAL MAXIMUM PLUS D CAPLETS [Concomitant]
     Dates: start: 20050101, end: 20080718

REACTIONS (3)
  - DIZZINESS [None]
  - HAEMATOCHEZIA [None]
  - HEADACHE [None]
